FAERS Safety Report 4749477-2 (Version None)
Quarter: 2005Q3

REPORT INFORMATION
  Report Type: 
  Country: None (occurrence: None)
  Receive Date: 20050822
  Receipt Date: 20040305
  Transmission Date: 20060218
  Serious: Yes (Hospitalization)
  Sender: FDA-Public Use
  Company Number: JP-SP-2004-00955

PATIENT
  Age: 71 Year
  Sex: Male

DRUGS (9)
  1. IMMUCYST [Suspect]
     Indication: BLADDER CANCER
     Dosage: 81 MG
     Route: 043
     Dates: start: 20040123, end: 20040206
  2. IMMUCYST [Suspect]
     Dosage: 81 MG
     Route: 043
     Dates: start: 20040123, end: 20040206
  3. IMMUCYST [Suspect]
     Dosage: 81 MG
     Route: 043
     Dates: start: 20040123, end: 20040206
  4. IMMUCYST [Suspect]
     Dosage: 81 MG
     Route: 043
     Dates: start: 20040123, end: 20040206
  5. ALLOPURINOL [Concomitant]
     Indication: HYPERURICAEMIA
     Route: 048
     Dates: start: 20010330, end: 20040213
  6. BROMHEXINE HYDROCHLORIDE [Concomitant]
     Indication: BRONCHITIS CHRONIC
     Route: 048
     Dates: start: 20011012, end: 20040213
  7. MECOBALAMIN [Concomitant]
     Indication: DIZZINESS
     Route: 048
     Dates: start: 20040123, end: 20040213
  8. ADENOSINE TRIPHOSPHATE [Concomitant]
     Indication: DIZZINESS
     Route: 048
     Dates: start: 20040123, end: 20040213
  9. ETHYL LOFLAZEPATE [Concomitant]
     Indication: DIZZINESS
     Route: 048
     Dates: start: 20040123, end: 20040213

REACTIONS (11)
  - BACTERIAL INFECTION [None]
  - BLADDER CANCER [None]
  - BLADDER PAIN [None]
  - DYSURIA [None]
  - GRANULOMA [None]
  - MALIGNANT NEOPLASM PROGRESSION [None]
  - NOCTURIA [None]
  - POLLAKIURIA [None]
  - PYREXIA [None]
  - RENAL DISORDER [None]
  - URINARY RETENTION [None]
